FAERS Safety Report 21049186 (Version 1)
Quarter: 2022Q3

REPORT INFORMATION
  Report Type: Spontaneous
  Country: US (occurrence: None)
  Receive Date: 20220706
  Receipt Date: 20220706
  Transmission Date: 20221027
  Serious: Yes (Hospitalization)
  Sender: FDA-Public Use
  Company Number: None

PATIENT
  Age: 80 Year
  Sex: Female
  Weight: 59.1 kg

DRUGS (9)
  1. NIRMATRELVIR\RITONAVIR [Suspect]
     Active Substance: NIRMATRELVIR\RITONAVIR
     Indication: COVID-19
     Dosage: FREQUENCY : TWICE A DAY;?
     Route: 048
     Dates: start: 20220630, end: 20220702
  2. AMLODIPINE [Concomitant]
     Active Substance: AMLODIPINE BESYLATE
  3. TRAMADOL [Concomitant]
     Active Substance: TRAMADOL
  4. DOXYCYCLINE [Concomitant]
     Active Substance: DOXYCYCLINE
  5. OMEPRAZOLE [Concomitant]
     Active Substance: OMEPRAZOLE
  6. LOSARTAN [Concomitant]
     Active Substance: LOSARTAN
  7. BENZONATATE [Concomitant]
     Active Substance: BENZONATATE
  8. TYLENOL WITH CODEINE [Concomitant]
     Active Substance: ACETAMINOPHEN\CODEINE PHOSPHATE
  9. SUCRALFATE [Concomitant]
     Active Substance: SUCRALFATE

REACTIONS (5)
  - Nausea [None]
  - Vomiting [None]
  - Diarrhoea [None]
  - Feeding disorder [None]
  - Vomiting [None]

NARRATIVE: CASE EVENT DATE: 20220702
